APPROVED DRUG PRODUCT: DOXORUBICIN HYDROCHLORIDE
Active Ingredient: DOXORUBICIN HYDROCHLORIDE
Strength: 2MG/ML
Dosage Form/Route: INJECTABLE;INJECTION
Application: N050629 | Product #001 | TE Code: AP
Applicant: PFIZER INC
Approved: Dec 23, 1987 | RLD: Yes | RS: Yes | Type: RX